FAERS Safety Report 19675816 (Version 2)
Quarter: 2022Q3

REPORT INFORMATION
  Report Type: Spontaneous
  Country: US (occurrence: US)
  Receive Date: 20210809
  Receipt Date: 20220726
  Transmission Date: 20221027
  Serious: No
  Sender: FDA-Public Use
  Company Number: US-BAUSCH-BL-2021-022959

PATIENT
  Age: 82 Year
  Sex: Female

DRUGS (3)
  1. ALAWAY PRESERVATIVE FREE [Suspect]
     Active Substance: KETOTIFEN FUMARATE
     Indication: Seasonal allergy
     Dosage: USED 2 TO 3 DROPS IN BOTH EYES,
     Route: 047
     Dates: start: 202106, end: 202106
  2. ALAWAY PRESERVATIVE FREE [Suspect]
     Active Substance: KETOTIFEN FUMARATE
     Dosage: IN RIGHT EYE
     Route: 047
     Dates: start: 20210629, end: 20210629
  3. REFRESH SOLUTION NOS [Concomitant]
     Active Substance: CARBOXYMETHYLCELLULOSE SODIUM\GLYCERIN
     Indication: Product used for unknown indication
     Route: 047

REACTIONS (6)
  - Ocular hyperaemia [Recovered/Resolved]
  - Erythema [Recovering/Resolving]
  - Eyelid pain [Recovered/Resolved]
  - Eye infection [Recovered/Resolved]
  - Periorbital pain [Recovering/Resolving]
  - Incorrect dose administered [Unknown]

NARRATIVE: CASE EVENT DATE: 20210101
